FAERS Safety Report 25844426 (Version 1)
Quarter: 2025Q3

REPORT INFORMATION
  Report Type: Report from Study
  Country: US (occurrence: US)
  Receive Date: 20250925
  Receipt Date: 20250925
  Transmission Date: 20251021
  Serious: Yes (Other)
  Sender: SANDOZ
  Company Number: US-SANDOZ-SDZ2025US068361

PATIENT
  Sex: Female

DRUGS (1)
  1. GLATOPA [Suspect]
     Active Substance: GLATIRAMER ACETATE
     Indication: Multiple sclerosis
     Dosage: 20 MG, QD
     Route: 058

REACTIONS (14)
  - Disability [Unknown]
  - Alopecia [Unknown]
  - Restless legs syndrome [Unknown]
  - Impaired quality of life [Unknown]
  - Central nervous system lesion [Unknown]
  - Helplessness [Unknown]
  - Reading disorder [Unknown]
  - Injection site swelling [Unknown]
  - Nervousness [Unknown]
  - Anxiety [Unknown]
  - Depression [Unknown]
  - Pain [Unknown]
  - Wrong technique in device usage process [Unknown]
  - Device issue [Unknown]
